FAERS Safety Report 20316047 (Version 3)
Quarter: 2022Q2

REPORT INFORMATION
  Report Type: Report from Study
  Country: KR (occurrence: KR)
  Receive Date: 20220110
  Receipt Date: 20220502
  Transmission Date: 20220721
  Serious: Yes (Hospitalization)
  Sender: FDA-Public Use
  Company Number: KR-CELLTRION INC.-2021KR017946

PATIENT

DRUGS (2)
  1. HERZUMA [Suspect]
     Active Substance: TRASTUZUMAB-PKRB
     Indication: HER2 positive gastric cancer
     Dosage: 320 MG (FREQUENCY: 3 WEEK(S))
     Route: 042
     Dates: start: 20211125, end: 20211215
  2. ENCOVER [Concomitant]
     Indication: Nutritional supplementation
     Dosage: 200 MG, QD
     Route: 048
     Dates: start: 20211125

REACTIONS (1)
  - Acute kidney injury [Recovering/Resolving]

NARRATIVE: CASE EVENT DATE: 20211227
